FAERS Safety Report 14852656 (Version 2)
Quarter: 2018Q3

REPORT INFORMATION
  Report Type: Spontaneous
  Country: US (occurrence: US)
  Receive Date: 20180507
  Receipt Date: 20180719
  Transmission Date: 20181010
  Serious: Yes (Hospitalization)
  Sender: FDA-Public Use
  Company Number: US-LPDUSPRD-20180746

PATIENT
  Age: 59 Year
  Sex: Female

DRUGS (17)
  1. VIMPAT [Concomitant]
     Active Substance: LACOSAMIDE
     Dosage: TAKE 50 MG PO BID FOR 180 DAYS
     Route: 048
  2. NOLVADEX [Concomitant]
     Active Substance: TAMOXIFEN CITRATE
     Dosage: TAKE 20 MG PO DAILY
     Route: 048
  3. ELIQUIS [Concomitant]
     Active Substance: APIXABAN
     Dosage: TAKE 5 MG PO BID
     Route: 048
  4. ASPIRIN. [Concomitant]
     Active Substance: ASPIRIN
     Dosage: TAKE 81 MG PO DAILY
     Route: 048
  5. VITAMIN D3 [Concomitant]
     Active Substance: CHOLECALCIFEROL
     Dosage: 600 MG(1,500MG)?200 UNIT DAILY
     Route: 048
  6. KLONOPIN [Concomitant]
     Active Substance: CLONAZEPAM
     Dosage: TAKE 1 MG PO TID PRN ANXIETY
     Route: 048
  7. MICRO?K [Concomitant]
     Active Substance: POTASSIUM CHLORIDE
     Dosage: TAKE 10 MEQ PO DAILY
     Route: 048
  8. MUCINEX [Concomitant]
     Active Substance: GUAIFENESIN
     Dosage: TAKE 600 MG PO BID
  9. ROBITUSSIN (GUAIFENESIN) [Concomitant]
     Active Substance: GUAIFENESIN
     Dosage: 10 ML PO Q4H PRN CONGESTION
     Route: 048
  10. ZOLOFT [Concomitant]
     Active Substance: SERTRALINE HYDROCHLORIDE
     Dosage: TAKE 50 MG PO DAILY
     Route: 048
  11. VITAMIN D3 [Concomitant]
     Active Substance: CHOLECALCIFEROL
     Dosage: TAKE 1 TABLET PO ONCE A WEEK
     Route: 048
  12. THERAGRAN [Concomitant]
     Active Substance: VITAMINS
     Dosage: TAKE 1 TABLET PO DAILY
     Route: 048
  13. K PHOS NEUTRAL [Concomitant]
     Active Substance: POTASSIUM PHOSPHATE, MONOBASIC\SODIUM PHOSPHATE, DIBASIC, ANHYDROUS\SODIUM PHOSPHATE, MONOBASIC, MONOHYDRATE
     Dosage: TAKE 1 PACKET PO TID WITH MEAL
     Route: 048
  14. SPIRIVA [Concomitant]
     Active Substance: TIOTROPIUM BROMIDE MONOHYDRATE
     Dosage: INHALE 18 MCG DAILY
     Route: 065
  15. SYMBICORT [Concomitant]
     Active Substance: BUDESONIDE\FORMOTEROL FUMARATE DIHYDRATE
     Dosage: INHALE 2 PUFFS BID
     Route: 065
  16. INJECTAFER [Suspect]
     Active Substance: FERRIC CARBOXYMALTOSE
     Dosage: UNKNOWN
     Route: 040
     Dates: start: 20180419, end: 20180419
  17. PROVENTIL HFA/VENTOLIN HFA [Concomitant]
     Dosage: INHALE 2 PUFFS Q 4H PRN SOB
     Route: 065

REACTIONS (1)
  - Anaphylactic reaction [Recovering/Resolving]

NARRATIVE: CASE EVENT DATE: 20180419
